FAERS Safety Report 12558421 (Version 3)
Quarter: 2017Q1

REPORT INFORMATION
  Report Type: Spontaneous
  Country: BE (occurrence: BE)
  Receive Date: 20160714
  Receipt Date: 20170104
  Transmission Date: 20170428
  Serious: Yes (Disabling, Other)
  Sender: FDA-Public Use
  Company Number: BE-009507513-1607BEL006245

PATIENT
  Age: 45 Year
  Sex: Female
  Weight: 78 kg

DRUGS (6)
  1. TEMODAL [Suspect]
     Active Substance: TEMOZOLOMIDE
     Indication: GLIOBLASTOMA MULTIFORME
     Dosage: TOTAL DAILY DOSE: 190 MG (5/28) (STRENGTH: 5 MG, 20 MG AND 100 MG)
     Route: 048
     Dates: start: 20150924, end: 20151204
  2. PANTOMED (DEXPANTHENOL) [Concomitant]
     Indication: ABDOMINAL PAIN UPPER
     Dosage: 40 MG, QD
     Route: 048
  3. NEURONTIN [Concomitant]
     Active Substance: GABAPENTIN
     Indication: GLIOBLASTOMA MULTIFORME
     Dosage: 600 MG, UNK (TOTAL DAILY DOSE: 1200 MG)
     Route: 048
  4. RIVOTRIL [Concomitant]
     Active Substance: CLONAZEPAM
     Indication: GLIOBLASTOMA MULTIFORME
     Dosage: 2 MG, QD
     Route: 048
  5. KEPPRA [Concomitant]
     Active Substance: LEVETIRACETAM
     Indication: GLIOBLASTOMA MULTIFORME
     Dosage: 500 MG, UNK (TOTAL DAILY DOSE: 1000 MG)
     Route: 048
  6. TEMODAL [Suspect]
     Active Substance: TEMOZOLOMIDE
     Dosage: TOTAL DAILY DOSE: 190 MG (5/28) (STRENGTH: 5 MG, 20 MG AND 100 MG)
     Route: 048
     Dates: start: 20151204

REACTIONS (7)
  - Thrombocytopenia [Recovered/Resolved]
  - Weight decreased [Unknown]
  - Off label use [Unknown]
  - Cerebral haemorrhage [Recovered/Resolved]
  - Fatigue [Not Recovered/Not Resolved]
  - Thrombocytopenia [Recovered/Resolved]
  - Disability [Unknown]

NARRATIVE: CASE EVENT DATE: 20151019
